FAERS Safety Report 6327728-0 (Version None)
Quarter: 2009Q3

REPORT INFORMATION
  Report Type: 
  Country: None (occurrence: None)
  Receive Date: 20090824
  Receipt Date: 20090807
  Transmission Date: 20100115
  Serious: Yes (Life-Threatening, Other)
  Sender: FDA-Public Use
  Company Number: 2004-113276-NL

PATIENT
  Age: 3 Year
  Sex: Male

DRUGS (2)
  1. NORCURON [Suspect]
     Indication: DRUG USE FOR UNKNOWN INDICATION
     Dosage: ONCE;
  2. SALINE [Suspect]

REACTIONS (4)
  - FEAR [None]
  - PARALYSIS FLACCID [None]
  - RESPIRATORY ARREST [None]
  - WRONG DRUG ADMINISTERED [None]
